FAERS Safety Report 21666033 (Version 2)
Quarter: 2022Q4

REPORT INFORMATION
  Report Type: Spontaneous
  Country: CN (occurrence: CN)
  Receive Date: 20221201
  Receipt Date: 20221230
  Transmission Date: 20230112
  Serious: Yes (Other)
  Sender: FDA-Public Use
  Company Number: CN-JNJFOC-20221160870

PATIENT
  Sex: Male

DRUGS (1)
  1. ERLEADA [Suspect]
     Active Substance: APALUTAMIDE
     Indication: Hormone-dependent prostate cancer
     Dosage: 120 TABLETS PER BOTTLE
     Route: 048
     Dates: end: 20221225

REACTIONS (3)
  - Aortic aneurysm rupture [Unknown]
  - Exfoliative rash [Unknown]
  - Blister [Unknown]

NARRATIVE: CASE EVENT DATE: 20221123
